FAERS Safety Report 5475871-0 (Version None)
Quarter: 2007Q4

REPORT INFORMATION
  Report Type: 
  Country: None (occurrence: None)
  Receive Date: 20071001
  Receipt Date: 20070924
  Transmission Date: 20080405
  Serious: Yes (Other)
  Sender: FDA-Public Use
  Company Number: L07-UKI-05193-01

PATIENT
  Age: 76 Year
  Sex: Female

DRUGS (5)
  1. ESCITALOPRAM OXALATE [Suspect]
     Dosage: 10 MG
  2. PROPRANOLOL [Suspect]
     Indication: ANXIETY
     Dosage: 80 MG
  3. PROPRANOLOL [Suspect]
     Indication: ESSENTIAL TREMOR
     Dosage: 80 MG
  4. DONEPEZIL HCL [Suspect]
     Dosage: 10 MG
  5. OMEPRAZOLE [Suspect]
     Dosage: 20 MG

REACTIONS (7)
  - BLOOD PRESSURE INCREASED [None]
  - DRUG INTERACTION [None]
  - ELECTROCARDIOGRAM QT PROLONGED [None]
  - SINUS BRADYCARDIA [None]
  - SYNCOPE [None]
  - TORSADE DE POINTES [None]
  - VENTRICULAR TACHYCARDIA [None]
